FAERS Safety Report 6495272-6 (Version None)
Quarter: 2009Q4

REPORT INFORMATION
  Report Type: 
  Country: None (occurrence: None)
  Receive Date: 20091214
  Receipt Date: 20090520
  Transmission Date: 20100525
  Serious: No
  Sender: FDA-Public Use
  Company Number: US-BRISTOL-MYERS SQUIBB COMPANY-14632772

PATIENT
  Age: 26 Year
  Sex: Female

DRUGS (2)
  1. ABILIFY [Suspect]
     Indication: MANIA
     Dosage: TAKING FOR 1 AND 1/2 YEARS. DOSE REDUCED TO 5MG
  2. EFFEXOR [Concomitant]

REACTIONS (1)
  - WEIGHT INCREASED [None]
